FAERS Safety Report 4479589-2 (Version None)
Quarter: 2004Q4

REPORT INFORMATION
  Report Type: 
  Country: None (occurrence: None)
  Receive Date: 20041015
  Receipt Date: 20041004
  Transmission Date: 20050328
  Serious: Yes (Hospitalization)
  Sender: FDA-Public Use
  Company Number: 2004EU001812

PATIENT
  Age: 46 Year
  Sex: Male

DRUGS (2)
  1. PROGRAF [Suspect]
     Indication: LIVER TRANSPLANT
     Dates: start: 20000301
  2. CORTICOSTEROIDS [Concomitant]

REACTIONS (10)
  - ACTIVATED PROTEIN C RESISTANCE [None]
  - COMPLICATIONS OF TRANSPLANTED LIVER [None]
  - DISEASE RECURRENCE [None]
  - FACTOR V LEIDEN MUTATION [None]
  - HEPATIC VEIN THROMBOSIS [None]
  - LIVER TRANSPLANT REJECTION [None]
  - PHLEBOTHROMBOSIS [None]
  - PROCEDURAL COMPLICATION [None]
  - PULMONARY EMBOLISM [None]
  - THROMBOPHLEBITIS [None]
